FAERS Safety Report 6109342-5 (Version None)
Quarter: 2009Q1

REPORT INFORMATION
  Report Type: 
  Country: None (occurrence: None)
  Receive Date: 20090306
  Receipt Date: 20090226
  Transmission Date: 20090719
  Serious: Yes (Other)
  Sender: FDA-Public Use
  Company Number: 2009SP004432

PATIENT
  Age: 64 Year
  Sex: Female
  Weight: 101.6057 kg

DRUGS (6)
  1. PEG-INTRON [Suspect]
     Indication: HEPATITIS C
     Dosage: SC
     Route: 058
     Dates: start: 20051011, end: 20060314
  2. RIBASPHERE [Suspect]
     Indication: HEPATITIS C
     Dosage: PO
     Route: 048
     Dates: start: 20051011, end: 20060314
  3. PREVACID [Concomitant]
  4. TYLENOL (CAPLET) [Concomitant]
  5. TRIAMTERENE AND HYDROCHLOROTHIAZIDE [Concomitant]
  6. PHENYTOIN SODIUM [Concomitant]

REACTIONS (6)
  - BLOOD COUNT ABNORMAL [None]
  - FATIGUE [None]
  - FEELING COLD [None]
  - NO THERAPEUTIC RESPONSE [None]
  - TRANSPLANT EVALUATION [None]
  - VAGINAL HAEMORRHAGE [None]
